FAERS Safety Report 5068460-3 (Version None)
Quarter: 2006Q3

REPORT INFORMATION
  Report Type: 
  Country: None (occurrence: None)
  Receive Date: 20060802
  Receipt Date: 20051007
  Transmission Date: 20061208
  Serious: Yes (Life-Threatening)
  Sender: FDA-Public Use
  Company Number: US-BRISTOL-MYERS SQUIBB COMPANY-13138094

PATIENT
  Age: 67 Year
  Sex: Female
  Weight: 65 kg

DRUGS (9)
  1. COUMADIN [Suspect]
     Indication: PULMONARY EMBOLISM
     Dosage: 4 MG MON, WED, THURS, FRI, SUN; 2 MG TUES, SAT
     Route: 048
     Dates: start: 20031201
  2. PROTONIX [Interacting]
     Indication: NAUSEA
     Route: 048
     Dates: start: 20050706, end: 20050715
  3. ACTONEL [Concomitant]
     Dosage: FOR A FEW YEARS
  4. ATENOLOL [Concomitant]
  5. FOLIC ACID [Concomitant]
     Dates: start: 20030101
  6. LIPITOR [Concomitant]
     Dates: start: 20050401
  7. PEPCID [Concomitant]
     Dosage: FOR YEARS
  8. PREDNISONE [Concomitant]
     Dates: start: 20020101
  9. VITAMIN B6 [Concomitant]
     Dates: start: 20030101

REACTIONS (2)
  - DRUG INTERACTION [None]
  - INTERNATIONAL NORMALISED RATIO FLUCTUATION [None]
